FAERS Safety Report 5610958-0 (Version None)
Quarter: 2008Q1

REPORT INFORMATION
  Report Type: 
  Country: None (occurrence: None)
  Receive Date: 20080201
  Receipt Date: 20080103
  Transmission Date: 20080703
  Serious: Yes (Death)
  Sender: FDA-Public Use
  Company Number: US-BAYER-US-2007-006377

PATIENT
  Age: 68 Year
  Sex: Male
  Weight: 91 kg

DRUGS (56)
  1. MAGNEVIST [Suspect]
     Indication: ANGIOGRAM
     Dosage: UNIT DOSE: 60 ML
     Route: 042
     Dates: start: 20011026, end: 20011026
  2. MAGNEVIST [Suspect]
     Dosage: UNIT DOSE: 60 ML
     Route: 042
     Dates: start: 20020611, end: 20020611
  3. MAGNEVIST [Suspect]
     Dosage: UNIT DOSE: 60 ML
     Route: 042
     Dates: start: 19981211, end: 19981211
  4. MAGNEVIST [Suspect]
     Dates: start: 20020709, end: 20020709
  5. MAGNEVIST [Suspect]
     Dates: start: 20020711, end: 20020711
  6. INSULIN [Concomitant]
     Indication: DIABETES MELLITUS
     Dates: start: 19880101
  7. MONOPRIL [Concomitant]
     Dates: end: 19951201
  8. LISINOPRIL [Concomitant]
     Dates: start: 19951201
  9. HYDROCHLOROTHIAZIDE [Concomitant]
  10. ATENOLOL [Concomitant]
  11. ASPIRIN [Concomitant]
  12. AMLODIPINE [Concomitant]
  13. LASIX [Concomitant]
  14. ISORDIL [Concomitant]
  15. DIABETA [Concomitant]
     Indication: DIABETES MELLITUS
     Dates: end: 19870101
  16. WARFARIN SODIUM [Concomitant]
     Indication: ANTICOAGULANT THERAPY
  17. ATORVASTATIN [Concomitant]
     Indication: HYPERCHOLESTEROLAEMIA
  18. ASCORBIC ACID [Concomitant]
  19. ZINC SULFATE [Concomitant]
  20. DOCUSATE SODIUM [Concomitant]
  21. GABAPENTIN [Concomitant]
  22. BENADRYL ^WARNER-LAMBERT^ /USA/ [Concomitant]
     Dosage: UNIT DOSE: 50 MG
     Route: 048
  23. DOXAZOSIN [Concomitant]
  24. ESOMEPRAZOLE [Concomitant]
  25. TRAZODONE HCL [Concomitant]
  26. CELEXA [Concomitant]
  27. PHOSLO [Concomitant]
  28. DARVOCET-N 100 [Concomitant]
  29. NEPHRO-VITE RX [Concomitant]
  30. FERRLECIT /USA/ [Concomitant]
  31. CALCIJEX [Concomitant]
  32. EPOGEN [Concomitant]
     Route: 058
     Dates: start: 19960701
  33. EPOGEN [Concomitant]
     Dates: start: 20030601, end: 20030627
  34. EPOGEN [Concomitant]
     Dates: start: 19970601
  35. CONRAY [Concomitant]
     Indication: FISTULOGRAM
     Dosage: UNIT DOSE: 120 ML
     Dates: start: 19970613, end: 19970613
  36. TECHNETIUM (99M TC) SESTAMIBI [Concomitant]
     Indication: CARDIAC STRESS TEST
     Dosage: UNIT DOSE: 956 MBQ
     Route: 042
     Dates: start: 19990825, end: 19990825
  37. TECHNETIUM (99M TC) SESTAMIBI [Concomitant]
     Dosage: UNIT DOSE: 826 MBQ
     Route: 042
     Dates: start: 19980217, end: 19980217
  38. TECHNETIUM (99M TC) SESTAMIBI [Concomitant]
     Dosage: UNIT DOSE: 316 MBQ
     Route: 042
     Dates: start: 19990825, end: 19990825
  39. TECHNETIUM (99M TC) SESTAMIBI [Concomitant]
     Dosage: UNIT DOSE: 327 MBQ
     Route: 042
     Dates: start: 19980217, end: 19980217
  40. TECHNETIUM (99M TC) SESTAMIBI [Concomitant]
     Dosage: UNIT DOSE: 377 MBQ
     Dates: start: 20020716, end: 20020716
  41. OXILAN-300 [Concomitant]
     Indication: ARTERIOGRAM CORONARY
     Dosage: UNIT DOSE: 175 ML
     Dates: start: 20001130, end: 20001130
  42. OXILAN-300 [Concomitant]
     Dosage: UNIT DOSE: 90 ML
     Dates: start: 19990826, end: 19990826
  43. CONTRAST MEDIA [Concomitant]
     Indication: COMPUTERISED TOMOGRAM THORAX
     Dates: start: 20001126, end: 20001126
  44. ULTRAVIST 300 [Concomitant]
     Indication: FISTULOGRAM
     Dosage: UNIT DOSE: 105 ML
     Route: 013
     Dates: start: 20030429, end: 20030429
  45. ULTRAVIST 300 [Concomitant]
     Dosage: UNIT DOSE: 105 ML
     Dates: start: 20030429, end: 20030429
  46. ULTRAVIST 300 [Concomitant]
     Dosage: UNIT DOSE: 70 ML
     Dates: start: 20030501, end: 20030501
  47. ULTRAVIST 300 [Concomitant]
     Dosage: UNIT DOSE: 50 ML
     Dates: start: 20030201, end: 20030201
  48. ULTRAVIST 300 [Concomitant]
     Dosage: UNIT DOSE: 70 ML
     Dates: start: 20030501, end: 20030501
  49. MEVACOR [Concomitant]
     Dates: start: 19960318
  50. OMNIPAQUE ^SCHERING^ [Concomitant]
     Dosage: UNIT DOSE: 40 ML
     Dates: start: 19980219, end: 19980219
  51. HEXABRIX /NET/ [Concomitant]
     Dosage: UNIT DOSE: 90 ML
     Dates: start: 19980219, end: 19980219
  52. HEPARIN [Concomitant]
     Indication: ANTICOAGULANT THERAPY
  53. VITAMIN B COMPLEX CAP [Concomitant]
  54. NIFEDIPINE [Concomitant]
  55. ISOSORBIDE MONONITRATE [Concomitant]
  56. PREDNISOLONE [Concomitant]
     Route: 031

REACTIONS (28)
  - ALOPECIA [None]
  - ASCITES [None]
  - ATRIAL FIBRILLATION [None]
  - BUNDLE BRANCH BLOCK RIGHT [None]
  - CELLULITIS [None]
  - COUGH [None]
  - DIABETIC FOOT [None]
  - DIABETIC GANGRENE [None]
  - DRY SKIN [None]
  - ERYTHEMA [None]
  - FALL [None]
  - FLUID OVERLOAD [None]
  - HYPERTENSIVE CRISIS [None]
  - HYPOXIA [None]
  - IMMOBILE [None]
  - JOINT CONTRACTURE [None]
  - MUSCLE ATROPHY [None]
  - MYOCARDIAL INFARCTION [None]
  - NEPHROGENIC SYSTEMIC FIBROSIS [None]
  - PINGUECULA [None]
  - PLEURAL EFFUSION [None]
  - PULSE ABSENT [None]
  - SKIN DISCOLOURATION [None]
  - SKIN HYPERPIGMENTATION [None]
  - SKIN INDURATION [None]
  - STAPHYLOCOCCAL INFECTION [None]
  - TOXIC ENCEPHALOPATHY [None]
  - UPPER GASTROINTESTINAL HAEMORRHAGE [None]
